FAERS Safety Report 10175263 (Version 1)
Quarter: 2014Q2

REPORT INFORMATION
  Report Type: Spontaneous
  Country: US (occurrence: US)
  Receive Date: 20140515
  Receipt Date: 20140515
  Transmission Date: 20141212
  Serious: No
  Sender: FDA-Public Use
  Company Number: US-VIVUS-2014V1000125

PATIENT
  Age: 70 Year
  Sex: Female
  Weight: 93.07 kg

DRUGS (6)
  1. QSYMIA 3.75MG/23MG [Suspect]
     Indication: WEIGHT DECREASED
     Route: 048
     Dates: start: 20140311
  2. HYDROCODONE [Concomitant]
     Indication: PAIN
     Route: 048
     Dates: start: 1994
  3. GABAPENTIN [Concomitant]
     Indication: PAIN
     Route: 048
     Dates: start: 2008
  4. IBUPROFEN [Concomitant]
     Indication: PAIN
     Route: 048
  5. SYNTHROID [Concomitant]
     Indication: HYPOTHYROIDISM
     Route: 048
  6. LISINOPRIL [Concomitant]
     Indication: HYPERTENSION
     Route: 048
     Dates: start: 1984

REACTIONS (1)
  - Somnolence [Not Recovered/Not Resolved]
